FAERS Safety Report 5338303-9 (Version None)
Quarter: 2007Q2

REPORT INFORMATION
  Report Type: 
  Country: None (occurrence: None)
  Receive Date: 20070327
  Receipt Date: 20070119
  Transmission Date: 20071010
  Serious: No
  Sender: FDA-Public Use
  Company Number: 235308

PATIENT
  Age: 54 Year

DRUGS (1)
  1. AVASTIN [Suspect]
     Indication: COLORECTAL CANCER METASTATIC
     Dosage: 440 MG, INTRAVENOUS
     Route: 042

REACTIONS (1)
  - MEDICATION ERROR [None]
